FAERS Safety Report 18927805 (Version 1)
Quarter: 2021Q1

REPORT INFORMATION
  Report Type: Spontaneous
  Country: US (occurrence: US)
  Receive Date: 20210223
  Receipt Date: 20210223
  Transmission Date: 20210420
  Serious: No
  Sender: FDA-Public Use
  Company Number: US-FERRINGPH-2020FE05999

PATIENT
  Age: 64 Year
  Sex: Male
  Weight: 53 kg

DRUGS (2)
  1. DESMOPRESSIN [Suspect]
     Active Substance: DESMOPRESSIN
     Indication: POLLAKIURIA
  2. DESMOPRESSIN [Suspect]
     Active Substance: DESMOPRESSIN
     Indication: HYPERTONIC BLADDER
     Dosage: ONE SPRAY, 2 TIMES DAILY IN THE SAME NOSTRIL, ALTERNATING NOSTRILS NEXT DAY
     Route: 065

REACTIONS (7)
  - Product use in unapproved indication [Not Recovered/Not Resolved]
  - Headache [Not Recovered/Not Resolved]
  - Fatigue [Not Recovered/Not Resolved]
  - Nausea [Not Recovered/Not Resolved]
  - Asthenia [Not Recovered/Not Resolved]
  - Recalled product administered [Unknown]
  - Weight decreased [Not Recovered/Not Resolved]

NARRATIVE: CASE EVENT DATE: 202004
